FAERS Safety Report 9800303 (Version 2)
Quarter: 2014Q3

REPORT INFORMATION
  Report Type: Spontaneous
  Country: US (occurrence: US)
  Receive Date: 20140106
  Receipt Date: 20140805
  Transmission Date: 20150326
  Serious: Yes (Hospitalization, Other)
  Sender: FDA-Public Use
  Company Number: US-009507513-1401USA001296

PATIENT
  Sex: Female

DRUGS (1)
  1. NUVARING [Suspect]
     Active Substance: ETHINYL ESTRADIOL\ETONOGESTREL
     Indication: CONTRACEPTION
     Dosage: UNK
     Route: 067
     Dates: start: 20130107

REACTIONS (10)
  - Urinary tract infection [Unknown]
  - Anaemia [Unknown]
  - Asthma [Unknown]
  - Pulmonary embolism [Unknown]
  - Anxiety [Unknown]
  - Blood cannabinoids increased [Unknown]
  - Amphetamines positive [Unknown]
  - Deep vein thrombosis [Unknown]
  - Nausea [Unknown]
  - Vomiting [Unknown]

NARRATIVE: CASE EVENT DATE: 201301
